FAERS Safety Report 6139932-5 (Version None)
Quarter: 2009Q2

REPORT INFORMATION
  Report Type: 
  Country: None (occurrence: None)
  Receive Date: 20090401
  Receipt Date: 20090319
  Transmission Date: 20091009
  Serious: Yes (Hospitalization)
  Sender: FDA-Public Use
  Company Number: US-ROCHE-617797

PATIENT
  Sex: Female
  Weight: 93 kg

DRUGS (1)
  1. CAPECITABINE [Suspect]
     Dosage: 2ND INDICATION: BREAST CANCER. 14 DAYS OF 21 DAYS
     Route: 048
     Dates: start: 20081101

REACTIONS (3)
  - CLOSTRIDIUM DIFFICILE COLITIS [None]
  - DEHYDRATION [None]
  - DIARRHOEA [None]
